FAERS Safety Report 10708793 (Version 3)
Quarter: 2015Q1

REPORT INFORMATION
  Report Type: Spontaneous
  Country: US (occurrence: US)
  Receive Date: 20150113
  Receipt Date: 20150304
  Transmission Date: 20150721
  Serious: No
  Sender: FDA-Public Use
  Company Number: US-PFIZER INC-2015013999

PATIENT
  Sex: Male

DRUGS (3)
  1. ADVIL PM [Suspect]
     Active Substance: DIPHENHYDRAMINE CITRATE\IBUPROFEN
     Indication: INSOMNIA
     Dosage: UNK
  2. EQUATE ACETAMINOPHEN PM EXTRA STRENGTH [Concomitant]
     Dosage: UNK
  3. EQUATE NIGHTIME PM [Concomitant]
     Dosage: UNK

REACTIONS (1)
  - Drug ineffective [Unknown]
